FAERS Safety Report 23764438 (Version 2)
Quarter: 2024Q2

REPORT INFORMATION
  Report Type: Spontaneous
  Country: US (occurrence: US)
  Receive Date: 20240420
  Receipt Date: 20240510
  Transmission Date: 20240716
  Serious: No
  Sender: FDA-Public Use
  Company Number: US-HALEON-2166735

PATIENT

DRUGS (2)
  1. TUMS ULTRA [Suspect]
     Active Substance: CALCIUM CARBONATE
     Indication: Product used for unknown indication
     Dosage: EXPDATE:202805 EXPDATE:202805
     Dates: start: 2024
  2. TUMS ULTRA [Suspect]
     Active Substance: CALCIUM CARBONATE
     Dates: start: 2024

REACTIONS (5)
  - Coating in mouth [Unknown]
  - Product complaint [Unknown]
  - Drug ineffective [Unknown]
  - Product odour abnormal [Unknown]
  - Poor quality product administered [Unknown]

NARRATIVE: CASE EVENT DATE: 20240101
